FAERS Safety Report 18526315 (Version 1)
Quarter: 2020Q4

REPORT INFORMATION
  Report Type: Report from Study
  Country: JP (occurrence: JP)
  Receive Date: 20201120
  Receipt Date: 20201120
  Transmission Date: 20210114
  Serious: Yes (Other)
  Sender: FDA-Public Use
  Company Number: JP-GLAXOSMITHKLINE-JP2020JPN226833

PATIENT
  Age: 70 Year
  Sex: Female

DRUGS (3)
  1. ACYCLOVIR. [Suspect]
     Active Substance: ACYCLOVIR
     Indication: HERPES ZOSTER
     Dosage: 750 MG
     Route: 041
  2. PREGABALIN. [Concomitant]
     Active Substance: PREGABALIN
     Indication: PAIN
     Dosage: 150 MG
     Route: 048
  3. ACYCLOVIR. [Suspect]
     Active Substance: ACYCLOVIR
     Dosage: 1050 MG
     Route: 041

REACTIONS (8)
  - Inappropriate antidiuretic hormone secretion [Unknown]
  - Radiculopathy [Unknown]
  - Altered state of consciousness [Recovered/Resolved]
  - Dehydration [Unknown]
  - Depressed level of consciousness [Recovered/Resolved]
  - Hyponatraemia [Unknown]
  - Herpes zoster [Recovering/Resolving]
  - Decreased appetite [Unknown]
